FAERS Safety Report 7997706-4 (Version None)
Quarter: 2011Q4

REPORT INFORMATION
  Report Type: 
  Country: None (occurrence: None)
  Receive Date: 20111221
  Receipt Date: 20111215
  Transmission Date: 20120403
  Serious: Yes (Hospitalization)
  Sender: FDA-Public Use
  Company Number: IE-JNJFOC-20111104166

PATIENT
  Sex: Male

DRUGS (10)
  1. DICLOFENAC SODIUM [Concomitant]
  2. FOLIC ACID [Concomitant]
  3. OMACOR [Concomitant]
  4. RABEPRAZOLE SODIUM [Concomitant]
  5. METHOTREXATE [Concomitant]
     Dates: start: 20110501
  6. FLUTICASONE PROPIONATE/SALMETEROL [Concomitant]
     Route: 055
  7. VENTOLIN [Concomitant]
     Route: 055
  8. SIMPONI [Suspect]
     Indication: PSORIATIC ARTHROPATHY
     Route: 058
     Dates: start: 20110501
  9. ARAVA [Concomitant]
     Dates: start: 20101122
  10. DONA COMPOSITUM [Concomitant]

REACTIONS (1)
  - PNEUMONIA [None]
